FAERS Safety Report 4987675-3 (Version None)
Quarter: 2006Q2

REPORT INFORMATION
  Report Type: 
  Country: None (occurrence: None)
  Receive Date: 20060424
  Receipt Date: 20060404
  Transmission Date: 20061013
  Serious: Yes (Hospitalization)
  Sender: FDA-Public Use
  Company Number: US200604000805

PATIENT
  Age: 95 Year
  Sex: Female

DRUGS (1)
  1. HUMALOG LISPRO (LISPRO LISPROL) VIAL [Suspect]
     Indication: DIABETES MELLITUS

REACTIONS (2)
  - LUNG INFECTION [None]
  - PNEUMONIA [None]
